FAERS Safety Report 6032865-4 (Version None)
Quarter: 2009Q1

REPORT INFORMATION
  Report Type: 
  Country: None (occurrence: None)
  Receive Date: 20090107
  Receipt Date: 20090107
  Transmission Date: 20090719
  Serious: Yes (Life-Threatening)
  Sender: FDA-Public Use
  Company Number: None

PATIENT
  Age: 16 Year
  Sex: Female
  Weight: 74 kg

DRUGS (2)
  1. HALOPERIDOL [Suspect]
     Indication: AGITATION
     Dosage: 5 MG IM ONE TIME ONLY IN 2009
     Route: 030
     Dates: start: 20080105, end: 20080105
  2. COGENTIN [Suspect]
     Dosage: 2 MG IM
     Route: 030

REACTIONS (4)
  - CARDIO-RESPIRATORY ARREST [None]
  - CONVULSION [None]
  - TACHYCARDIA [None]
  - UNRESPONSIVE TO STIMULI [None]
